FAERS Safety Report 7509314-X (Version None)
Quarter: 2011Q2

REPORT INFORMATION
  Report Type: 
  Country: None (occurrence: None)
  Receive Date: 20110527
  Receipt Date: 20110523
  Transmission Date: 20111010
  Serious: Yes (Hospitalization)
  Sender: FDA-Public Use
  Company Number: NL-ROCHE-778892

PATIENT
  Sex: Female

DRUGS (7)
  1. ORAMORPH SR [Concomitant]
  2. CAPECITABINE [Suspect]
     Dosage: DATE OF LAST CYCLE: 12 APRIL 2011
     Route: 048
     Dates: start: 20101014
  3. DURAGESIC-100 [Concomitant]
  4. PAROXETINE HCL [Concomitant]
  5. IRBESARTAN [Concomitant]
  6. PANTOPRAZOLE [Concomitant]
  7. BEVACIZUMAB [Suspect]
     Dosage: DATE OF LAST CYCLE: 12 APRIL 2011
     Route: 042
     Dates: start: 20101014

REACTIONS (1)
  - STRESS FRACTURE [None]
